FAERS Safety Report 14271373 (Version 1)
Quarter: 2017Q4

REPORT INFORMATION
  Report Type: Spontaneous
  Country: US (occurrence: US)
  Receive Date: 20171211
  Receipt Date: 20171211
  Transmission Date: 20180321
  Serious: Yes (Death)
  Sender: FDA-Public Use
  Company Number: US-PERRIGO-17US031019

PATIENT
  Age: 58 Year
  Sex: Male

DRUGS (10)
  1. MELOXICAM. [Suspect]
     Active Substance: MELOXICAM
     Indication: COMPLETED SUICIDE
     Dosage: UNK
     Route: 048
  2. AMPHETAMINE [Suspect]
     Active Substance: AMPHETAMINE
     Indication: COMPLETED SUICIDE
     Dosage: UNK
     Route: 048
  3. ALPHA AND BETA BLOCKING AGENTS [Suspect]
     Active Substance: UNSPECIFIED INGREDIENT
     Indication: COMPLETED SUICIDE
     Dosage: UNK
     Route: 048
  4. PRAVASTATIN. [Suspect]
     Active Substance: PRAVASTATIN
     Indication: COMPLETED SUICIDE
     Dosage: UNK
     Route: 048
  5. MELATONIN [Suspect]
     Active Substance: MELATONIN
     Indication: COMPLETED SUICIDE
     Dosage: UNK
     Route: 048
  6. CHENODEOXYCHOLIC ACID [Suspect]
     Active Substance: CHENODIOL
     Indication: COMPLETED SUICIDE
     Dosage: UNK
     Route: 048
  7. SERTRALINE [Suspect]
     Active Substance: SERTRALINE HYDROCHLORIDE
     Indication: COMPLETED SUICIDE
     Dosage: UNK
     Route: 048
  8. OLANZAPINE. [Suspect]
     Active Substance: OLANZAPINE
     Indication: COMPLETED SUICIDE
     Dosage: UNK
     Route: 048
  9. GABAPENTIN. [Suspect]
     Active Substance: GABAPENTIN
     Indication: COMPLETED SUICIDE
     Dosage: UNK
     Route: 048
  10. IBUPROFEN. [Suspect]
     Active Substance: IBUPROFEN
     Indication: COMPLETED SUICIDE
     Dosage: UNK
     Route: 048

REACTIONS (2)
  - Completed suicide [None]
  - Death [Fatal]
